FAERS Safety Report 9106309 (Version 2)
Quarter: 2013Q2

REPORT INFORMATION
  Report Type: Spontaneous
  Country: GB (occurrence: GB)
  Receive Date: 20130220
  Receipt Date: 20130510
  Transmission Date: 20140414
  Serious: Yes (Other)
  Sender: FDA-Public Use
  Company Number: GB-ELI_LILLY_AND_COMPANY-GB201302003004

PATIENT
  Age: 64 Year
  Sex: Male
  Weight: 62.3 kg

DRUGS (11)
  1. ALIMTA [Suspect]
     Indication: NON-SMALL CELL LUNG CANCER
     Dosage: 850 MG, 3/W
     Route: 042
     Dates: start: 20130131, end: 20130131
  2. VITAMIN B12 [Concomitant]
     Dosage: 1000 MG, UNK
     Dates: start: 20130116
  3. FOLIC ACID [Concomitant]
     Dosage: 400 UG, UNK
     Dates: start: 20130116
  4. CORTICOSTEROIDS [Concomitant]
     Dosage: 4 MG, UNK
     Dates: start: 20130129
  5. RAMIPRIL [Concomitant]
  6. OMEPRAZOLE [Concomitant]
  7. QUININE [Concomitant]
  8. CO-CODAMOL [Concomitant]
  9. FERROUS SULFATE [Concomitant]
  10. AMITRIPTYLINE [Concomitant]
  11. ASPIRIN [Concomitant]

REACTIONS (5)
  - Erythema multiforme [Recovered/Resolved]
  - Renal impairment [Unknown]
  - Neutropenia [Unknown]
  - Pyrexia [Unknown]
  - General physical health deterioration [Unknown]
